FAERS Safety Report 10445475 (Version 2)
Quarter: 2014Q3

REPORT INFORMATION
  Report Type: Spontaneous
  Country: IT (occurrence: IT)
  Receive Date: 20140910
  Receipt Date: 20140916
  Transmission Date: 20150326
  Serious: Yes (Life-Threatening)
  Sender: FDA-Public Use
  Company Number: PHHY2014IT116061

PATIENT
  Age: 81 Year
  Sex: Female

DRUGS (6)
  1. COUMADINE [Suspect]
     Active Substance: WARFARIN SODIUM
     Indication: CEREBROVASCULAR ACCIDENT PROPHYLAXIS
     Dosage: 6.25 MG, WEEKLY
     Route: 048
     Dates: start: 20110316, end: 20140805
  2. ZESTORETIC [Concomitant]
     Active Substance: HYDROCHLOROTHIAZIDE\LISINOPRIL
     Dosage: 1 DF, DAILY
  3. VOLTAREN [Suspect]
     Active Substance: DICLOFENAC SODIUM
     Indication: OSTEOARTHRITIS
     Dosage: 100 MG, DAILY
     Route: 048
     Dates: start: 20140802, end: 20140803
  4. COUMADINE [Suspect]
     Active Substance: WARFARIN SODIUM
     Dosage: UNK UKN, UNK
  5. BRUFEN//IBUPROFEN [Suspect]
     Active Substance: IBUPROFEN
     Indication: OSTEOARTHRITIS
     Dosage: 800 MG, DAILY
     Route: 048
     Dates: start: 20140715, end: 20140805
  6. LOPRESSOR [Concomitant]
     Active Substance: METOPROLOL TARTRATE
     Dosage: 125 MG, DAILY

REACTIONS (1)
  - International normalised ratio increased [Recovered/Resolved]

NARRATIVE: CASE EVENT DATE: 20140805
